FAERS Safety Report 5297541-4 (Version None)
Quarter: 2007Q2

REPORT INFORMATION
  Report Type: 
  Country: None (occurrence: None)
  Receive Date: 20070416
  Receipt Date: 20070404
  Transmission Date: 20071010
  Serious: Yes (Other)
  Sender: FDA-Public Use
  Company Number: PHHO2007AR03932

PATIENT
  Age: 70 Year
  Sex: Female

DRUGS (1)
  1. ZELMAC / HTF 919A [Suspect]
     Indication: GASTROINTESTINAL MOTILITY DISORDER
     Dosage: 6 MG, QD
     Route: 048
     Dates: start: 20040101

REACTIONS (6)
  - HERNIA REPAIR [None]
  - HYSTERECTOMY [None]
  - INGUINAL HERNIA [None]
  - PROLAPSE REPAIR [None]
  - UTERINE PROLAPSE [None]
  - VIRAL PHARYNGITIS [None]
